FAERS Safety Report 5491706-4 (Version None)
Quarter: 2007Q4

REPORT INFORMATION
  Report Type: 
  Country: None (occurrence: None)
  Receive Date: 20071018
  Receipt Date: 20071018
  Transmission Date: 20080405
  Serious: Yes (Hospitalization)
  Sender: FDA-Public Use
  Company Number: None

PATIENT
  Age: 21 Year
  Sex: Female

DRUGS (6)
  1. ACETAMINOPHEN [Suspect]
     Indication: PAIN
     Dosage: 37.5 GM PO OVER 96 HRS
     Route: 048
     Dates: start: 20070828, end: 20070901
  2. MOTRIN [Concomitant]
  3. PREDNISONE [Concomitant]
  4. PLAQUENIL [Concomitant]
  5. METOPROLOL [Concomitant]
  6. PERCOCET [Concomitant]

REACTIONS (5)
  - ABDOMINAL PAIN [None]
  - CONDITION AGGRAVATED [None]
  - NAUSEA [None]
  - SYSTEMIC LUPUS ERYTHEMATOSUS [None]
  - VOMITING [None]
